FAERS Safety Report 5599312-8 (Version None)
Quarter: 2008Q1

REPORT INFORMATION
  Report Type: 
  Country: None (occurrence: None)
  Receive Date: 20080122
  Receipt Date: 20080114
  Transmission Date: 20080703
  Serious: Yes (Hospitalization, Other)
  Sender: FDA-Public Use
  Company Number: US-PFIZER INC-2006134397

PATIENT
  Sex: Female
  Weight: 99.8 kg

DRUGS (14)
  1. CELEBREX [Suspect]
     Indication: PAIN MANAGEMENT
     Route: 048
  2. VIOXX [Suspect]
     Indication: ARTHRITIS
     Route: 048
  3. PREMARIN [Concomitant]
     Indication: HORMONE THERAPY
  4. METHOCARBAMOL [Concomitant]
     Indication: BACK PAIN
  5. LISINOPRIL [Concomitant]
     Indication: HYPERTENSION
  6. LISINOPRIL [Concomitant]
     Indication: CARDIAC FAILURE
  7. LASIX [Concomitant]
     Indication: FLUID RETENTION
  8. PRAVACHOL [Concomitant]
     Indication: BLOOD CHOLESTEROL INCREASED
  9. ASPIRIN [Concomitant]
     Indication: MYOCARDIAL INFARCTION
  10. ASPIRIN [Concomitant]
     Indication: HYPERCOAGULATION
  11. ZOCOR [Concomitant]
     Indication: BLOOD CHOLESTEROL INCREASED
  12. NITROGLYCERIN [Concomitant]
     Indication: CHEST PAIN
  13. HYDROCODONE [Concomitant]
     Indication: BACK PAIN
  14. PLAVIX [Concomitant]
     Indication: ARTERIOSCLEROSIS

REACTIONS (4)
  - ANXIETY [None]
  - CARDIOVASCULAR DISORDER [None]
  - DEPRESSION [None]
  - MYOCARDIAL INFARCTION [None]
